FAERS Safety Report 8332635-8 (Version None)
Quarter: 2012Q2

REPORT INFORMATION
  Report Type: 
  Country: None (occurrence: None)
  Receive Date: 20120503
  Receipt Date: 20120418
  Transmission Date: 20120825
  Serious: Yes (Life-Threatening, Hospitalization)
  Sender: FDA-Public Use
  Company Number: CN-JNJFOC-20120413650

PATIENT
  Sex: Male
  Weight: 60 kg

DRUGS (2)
  1. OLANZAPINE [Suspect]
     Indication: SCHIZOPHRENIA
     Route: 048
  2. RISPERIDONE [Suspect]
     Indication: SCHIZOPHRENIA
     Route: 048
     Dates: start: 20110606, end: 20110621

REACTIONS (4)
  - URINARY INCONTINENCE [None]
  - GRAND MAL CONVULSION [None]
  - COMA [None]
  - EPILEPSY [None]
